FAERS Safety Report 21452382 (Version 1)
Quarter: 2022Q4

REPORT INFORMATION
  Report Type: Spontaneous
  Country: CN (occurrence: None)
  Receive Date: 20221013
  Receipt Date: 20221013
  Transmission Date: 20230113
  Serious: Yes (Other)
  Sender: FDA-Public Use
  Company Number: CN-ROCHE-3198905

PATIENT
  Age: 49 Year
  Sex: Female
  Weight: 50.3 kg

DRUGS (5)
  1. HERCEPTIN [Suspect]
     Active Substance: TRASTUZUMAB
     Indication: Invasive breast carcinoma
     Dosage: TREATMENT ON 04/MAR/2022, 25/MAR/2022
     Route: 041
  2. SODIUM CHLORIDE [Concomitant]
     Active Substance: SODIUM CHLORIDE
     Route: 041
     Dates: start: 20220325
  3. PACLITAXEL [Concomitant]
     Active Substance: PACLITAXEL
     Indication: Invasive breast carcinoma
     Dosage: TREATMENT ON 04-MAR-2022, 25-MAR-2022
     Route: 041
  4. CARBOPLATIN [Concomitant]
     Active Substance: CARBOPLATIN
     Indication: Invasive breast carcinoma
     Dosage: TREATMENT ON 04-MAR-2022, 25-MAR-2022
     Route: 041
  5. DOCETAXEL [Concomitant]
     Active Substance: DOCETAXEL
     Indication: Invasive breast carcinoma
     Route: 041

REACTIONS (1)
  - Myelosuppression [Recovering/Resolving]

NARRATIVE: CASE EVENT DATE: 20220803
